FAERS Safety Report 4760289-6 (Version None)
Quarter: 2005Q3

REPORT INFORMATION
  Report Type: 
  Country: None (occurrence: None)
  Receive Date: 20050902
  Receipt Date: 20050621
  Transmission Date: 20060218
  Serious: Yes (Hospitalization, Disabling)
  Sender: FDA-Public Use
  Company Number: US-ROCHE-408663

PATIENT
  Age: 18 Year
  Sex: Male
  Weight: 49.9 kg

DRUGS (2)
  1. ACCUTANE [Suspect]
     Route: 048
     Dates: start: 19931217, end: 19940614
  2. MINOCIN [Concomitant]
     Route: 048
     Dates: start: 19931217

REACTIONS (16)
  - ANHEDONIA [None]
  - ANXIETY [None]
  - CHEST PAIN [None]
  - CONSTIPATION [None]
  - DYSPEPSIA [None]
  - HAEMORRHOIDS [None]
  - INJURY [None]
  - NIGHT SWEATS [None]
  - PAIN [None]
  - PALPITATIONS [None]
  - PHARMACEUTICAL PRODUCT COMPLAINT [None]
  - PYREXIA [None]
  - RECTAL HAEMORRHAGE [None]
  - STOMATITIS [None]
  - TESTICULAR TORSION [None]
  - TESTIS CANCER [None]
